FAERS Safety Report 7067422-4 (Version None)
Quarter: 2010Q4

REPORT INFORMATION
  Report Type: 
  Country: None (occurrence: None)
  Receive Date: 20101026
  Receipt Date: 20101026
  Transmission Date: 20110411
  Serious: Yes (Life-Threatening, Hospitalization)
  Sender: FDA-Public Use
  Company Number: None

PATIENT
  Age: 25 Year
  Sex: Male
  Weight: 82 kg

DRUGS (2)
  1. FILGRASTIM 300 MCG AMGEN [Suspect]
     Indication: HAEMATOPOIETIC STEM CELL MOBILISATION
     Dosage: 900 MCG DAILY DAILY SQ
     Route: 058
     Dates: start: 20100916, end: 20100926
  2. PLERIXAFOR 20 MG/ML GENZYME [Suspect]
     Indication: HAEMATOPOIETIC STEM CELL MOBILISATION
     Dosage: 0.24 MCG/KG ONCE SQ
     Route: 058
     Dates: start: 20100926, end: 20100926

REACTIONS (7)
  - BACK PAIN [None]
  - DYSPNOEA [None]
  - HYPOTENSION [None]
  - MUSCULOSKELETAL PAIN [None]
  - NO THERAPEUTIC RESPONSE [None]
  - SPLENIC RUPTURE [None]
  - TACHYCARDIA [None]
